FAERS Safety Report 15880462 (Version 7)
Quarter: 2019Q2

REPORT INFORMATION
  Report Type: Spontaneous
  Country: US (occurrence: US)
  Receive Date: 20190128
  Receipt Date: 20190617
  Transmission Date: 20190711
  Serious: Yes (Other)
  Sender: FDA-Public Use
  Company Number: US-PFIZER INC-2019031562

PATIENT
  Age: 65 Year
  Sex: Female
  Weight: 54.43 kg

DRUGS (7)
  1. FLONASE [Concomitant]
     Active Substance: FLUTICASONE PROPIONATE
     Dosage: UNK
     Route: 055
  2. MUCINEX [Concomitant]
     Active Substance: GUAIFENESIN
     Indication: SINUSITIS
     Dosage: UNK, AS NEEDED
     Route: 048
  3. MUCINEX [Concomitant]
     Active Substance: GUAIFENESIN
     Indication: BRONCHITIS CHRONIC
  4. MUCINEX [Concomitant]
     Active Substance: GUAIFENESIN
     Indication: RESPIRATORY DISORDER
  5. ZITHROMAX [Suspect]
     Active Substance: AZITHROMYCIN DIHYDRATE
     Indication: BRONCHITIS CHRONIC
     Dosage: 250 MG, UNK (1 TABLET THE REMAINING 4 DAYS)
     Route: 048
     Dates: end: 201807
  6. ZITHROMAX [Suspect]
     Active Substance: AZITHROMYCIN DIHYDRATE
     Indication: SINUSITIS
     Dosage: 500 MG, UNK (2 TABLETS FIRST DAY)
     Route: 048
  7. MUCINEX [Concomitant]
     Active Substance: GUAIFENESIN
     Indication: NASAL CONGESTION
     Dosage: 600 MG, 2X/DAY

REACTIONS (10)
  - Drug ineffective [Unknown]
  - Abdominal pain upper [Unknown]
  - Weight decreased [Unknown]
  - Coeliac disease [Not Recovered/Not Resolved]
  - Malaise [Unknown]
  - Eating disorder [Unknown]
  - Gastritis [Unknown]
  - Reaction to excipient [Unknown]
  - Condition aggravated [Unknown]
  - Incorrect product administration duration [Unknown]

NARRATIVE: CASE EVENT DATE: 201805
